FAERS Safety Report 5772744-0 (Version None)
Quarter: 2008Q2

REPORT INFORMATION
  Report Type: 
  Country: None (occurrence: None)
  Receive Date: 20080613
  Receipt Date: 20080601
  Transmission Date: 20081010
  Serious: Yes (Other)
  Sender: FDA-Public Use
  Company Number: DZ-PFIZER INC-2008046136

PATIENT
  Age: 51 Year
  Sex: Female

DRUGS (2)
  1. PREGABALIN [Suspect]
     Indication: RADICULOPATHY
     Route: 048
  2. PREGABALIN [Suspect]
     Indication: PAIN

REACTIONS (5)
  - CONFUSIONAL STATE [None]
  - DEPRESSED LEVEL OF CONSCIOUSNESS [None]
  - FATIGUE [None]
  - HYPERSOMNIA [None]
  - VERTIGO [None]
